FAERS Safety Report 20456199 (Version 1)
Quarter: 2022Q1

REPORT INFORMATION
  Report Type: Spontaneous
  Country: US (occurrence: None)
  Receive Date: 20220210
  Receipt Date: 20220210
  Transmission Date: 20220423
  Serious: No
  Sender: FDA-Public Use
  Company Number: None

PATIENT
  Sex: Female

DRUGS (2)
  1. COLLAGENASE\COLLAGENASE CLOSTRIDIUM HISTOLYTICUM [Suspect]
     Active Substance: COLLAGENASE\COLLAGENASE CLOSTRIDIUM HISTOLYTICUM
     Indication: Cellulite
     Dosage: OTHER FREQUENCY : 2 SESSIONS;?OTHER ROUTE : INJECTION SPECIFIC AREAS;?
     Route: 050
     Dates: start: 20210902, end: 20210923
  2. TRAZODONE [Concomitant]
     Active Substance: TRAZODONE HYDROCHLORIDE

REACTIONS (3)
  - Contusion [None]
  - Pain [None]
  - Tenderness [None]

NARRATIVE: CASE EVENT DATE: 20210902
